FAERS Safety Report 13370857 (Version 2)
Quarter: 2017Q1

REPORT INFORMATION
  Report Type: Spontaneous
  Country: US (occurrence: US)
  Receive Date: 20170324
  Receipt Date: 20170329
  Transmission Date: 20170429
  Serious: Yes (Other)
  Sender: FDA-Public Use
  Company Number: US-ALLERGAN-1711104US

PATIENT
  Age: 18 Year
  Sex: Male

DRUGS (1)
  1. ASENAPINE MALEATE - BP [Suspect]
     Active Substance: ASENAPINE MALEATE
     Indication: PRODUCT USED FOR UNKNOWN INDICATION
     Dosage: 20 DF, UNK
     Route: 048

REACTIONS (9)
  - Weight increased [Unknown]
  - Abnormal behaviour [Unknown]
  - Sedation [Unknown]
  - Communication disorder [Unknown]
  - Delusion [Unknown]
  - Social avoidant behaviour [Unknown]
  - Blunted affect [Unknown]
  - Cognitive disorder [Unknown]
  - Drug ineffective [Unknown]
